FAERS Safety Report 16117260 (Version 1)
Quarter: 2019Q1

REPORT INFORMATION
  Report Type: Spontaneous
  Country: US (occurrence: US)
  Receive Date: 20190221
  Receipt Date: 20190221
  Transmission Date: 20190418
  Serious: No
  Sender: FDA-Public Use
  Company Number: None

PATIENT
  Age: 58 Year
  Sex: Female

DRUGS (1)
  1. GLATIRAMER PFS INJ (12/BOX) [Suspect]
     Active Substance: GLATIRAMER
     Route: 058
     Dates: start: 20190118

REACTIONS (3)
  - Cough [None]
  - Headache [None]
  - Pyrexia [None]

NARRATIVE: CASE EVENT DATE: 20190220
